FAERS Safety Report 7377912-2 (Version None)
Quarter: 2011Q1

REPORT INFORMATION
  Report Type: 
  Country: None (occurrence: None)
  Receive Date: 20110328
  Receipt Date: 20110114
  Transmission Date: 20110831
  Serious: Yes (Other)
  Sender: FDA-Public Use
  Company Number: US-ACTELION-A-US2010-41583

PATIENT

DRUGS (2)
  1. COUMADIN [Concomitant]
  2. TRACLEER [Suspect]
     Indication: PULMONARY ARTERIAL HYPERTENSION
     Dosage: UNK
     Route: 048
     Dates: start: 20090410

REACTIONS (5)
  - HAEMORRHAGE [None]
  - TRANSFUSION [None]
  - HAEMATOCHEZIA [None]
  - BLOOD PRESSURE DECREASED [None]
  - ANAEMIA [None]
